FAERS Safety Report 5799421-4 (Version None)
Quarter: 2008Q3

REPORT INFORMATION
  Report Type: 
  Country: None (occurrence: None)
  Receive Date: 20080703
  Receipt Date: 20080630
  Transmission Date: 20090109
  Serious: Yes (Death, Hospitalization)
  Sender: FDA-Public Use
  Company Number: GB-RANBAXY-2008RR-16128

PATIENT

DRUGS (5)
  1. CLARITHROMYCIN [Suspect]
     Indication: LOBAR PNEUMONIA
     Dosage: UNK
     Route: 065
     Dates: start: 20060225, end: 20060301
  2. DIGOXIN [Concomitant]
     Dosage: 187.5 MG, UNK
  3. FUROSEMIDE [Concomitant]
     Dosage: 40 MG, QD
  4. LANSOPRAZOLE [Concomitant]
     Dosage: 15 MG, QD
  5. SIMVASTATIN [Concomitant]
     Dosage: 20 MG, QD

REACTIONS (3)
  - ACUTE RESPIRATORY DISTRESS SYNDROME [None]
  - PANCREATITIS [None]
  - PNEUMONIA [None]
